FAERS Safety Report 25338723 (Version 6)
Quarter: 2025Q3

REPORT INFORMATION
  Report Type: Report from Study
  Country: US (occurrence: US)
  Receive Date: 20250520
  Receipt Date: 20250701
  Transmission Date: 20251021
  Serious: Yes (Hospitalization, Other)
  Sender: MALLINCKRODT
  Company Number: US-MALLINCKRODT-MNK202502657

PATIENT
  Age: 66 Year
  Sex: Female
  Weight: 140 kg

DRUGS (21)
  1. CORTICOTROPIN [Suspect]
     Active Substance: CORTICOTROPIN
     Indication: Proteinuria
     Route: 058
     Dates: start: 20250422, end: 2025
  2. GABAPENTIN [Suspect]
     Active Substance: GABAPENTIN
     Indication: Product used for unknown indication
     Route: 048
  3. ATORVASTATIN CALCIUM [Concomitant]
     Active Substance: ATORVASTATIN CALCIUM
     Dosage: UNKNOWN
     Route: 048
  4. CARVEDILOL [Concomitant]
     Active Substance: CARVEDILOL
     Indication: Hypertension
     Dosage: UNKNOWN
     Route: 048
  5. CLONIDINE HYDROCHLORIDE [Concomitant]
     Active Substance: CLONIDINE HYDROCHLORIDE
     Dosage: UNKNOWN
     Route: 048
  6. CALCITRIOL [Concomitant]
     Active Substance: CALCITRIOL
     Route: 048
  7. SODIUM CHLORIDE [Concomitant]
     Active Substance: SODIUM CHLORIDE
     Dosage: UNKNOWN
     Route: 048
  8. ZOFRAN [Concomitant]
     Active Substance: ONDANSETRON HYDROCHLORIDE
     Route: 048
  9. LEVEMIR [Concomitant]
     Active Substance: INSULIN DETEMIR
     Route: 058
  10. NOVOLOG [Concomitant]
     Active Substance: INSULIN ASPART
     Route: 058
  11. D FIRST NANO [Concomitant]
     Route: 048
  12. VITAMIN C [Concomitant]
     Active Substance: ASCORBIC ACID
     Route: 048
  13. FAMOTIDINE [Concomitant]
     Active Substance: FAMOTIDINE
     Dosage: UNKNOWN
     Route: 048
  14. ATROVENT HSA [Concomitant]
     Route: 055
  15. AMITRIPTYLINE HYDROCHLORIDE [Concomitant]
     Active Substance: AMITRIPTYLINE HYDROCHLORIDE
     Dosage: UNKNOWN
     Route: 048
  16. PROAIR HFA [Concomitant]
     Active Substance: ALBUTEROL SULFATE
     Route: 055
  17. FLONASE [Concomitant]
     Active Substance: FLUTICASONE PROPIONATE
  18. AMLODIPINE BESYLATE [Concomitant]
     Active Substance: AMLODIPINE BESYLATE
     Dosage: UNKNOWN
     Route: 048
  19. FERROUS SULFATE [Concomitant]
     Active Substance: FERROUS SULFATE
     Dosage: 325 (65) MG
     Route: 048
  20. SODIUM BICARBONATE [Concomitant]
     Active Substance: SODIUM BICARBONATE
     Dosage: UNKNOWN
     Route: 048
  21. CRANBERRY [ASCORBIC ACID;TOCOPHEROL;VACCINIUM MACROCARPON] [Concomitant]
     Route: 048

REACTIONS (10)
  - Renal failure [Unknown]
  - Diarrhoea haemorrhagic [Unknown]
  - Oxygen saturation decreased [Not Recovered/Not Resolved]
  - Hypertension [Unknown]
  - Pollakiuria [Unknown]
  - Increased appetite [Unknown]
  - Blood glucose increased [Recovered/Resolved]
  - Peripheral swelling [Unknown]
  - Swelling face [Unknown]
  - Abdominal distension [Unknown]

NARRATIVE: CASE EVENT DATE: 20250101
